FAERS Safety Report 21309742 (Version 2)
Quarter: 2023Q4

REPORT INFORMATION
  Report Type: Report from Study
  Country: AR (occurrence: AR)
  Receive Date: 20220908
  Receipt Date: 20231109
  Transmission Date: 20240109
  Serious: Yes (Other)
  Sender: FDA-Public Use
  Company Number: AR-ABBVIE-22K-007-4531474-00

PATIENT
  Sex: Male

DRUGS (1)
  1. HUMIRA [Suspect]
     Active Substance: ADALIMUMAB
     Indication: Colitis ulcerative
     Dosage: FORM STRENGTH: 40 MG
     Route: 058
     Dates: start: 20210101

REACTIONS (2)
  - Pharyngeal mass [Not Recovered/Not Resolved]
  - Thyroid neoplasm [Not Recovered/Not Resolved]

NARRATIVE: CASE EVENT DATE: 20220101
